FAERS Safety Report 8714966 (Version 3)
Quarter: 2013Q2

REPORT INFORMATION
  Report Type: Report from Study
  Country: BR (occurrence: BR)
  Receive Date: 20120809
  Receipt Date: 20130509
  Transmission Date: 20140414
  Serious: Yes (Other)
  Sender: FDA-Public Use
  Company Number: PHHY2012BR068298

PATIENT
  Sex: Male
  Weight: 70 kg

DRUGS (5)
  1. EXELON PATCH [Suspect]
     Indication: DEMENTIA ALZHEIMER^S TYPE
     Dosage: 0.5 DF (18MG/10CM2), DAILY
     Route: 062
  2. EXELON PATCH [Suspect]
     Indication: DEMENTIA
  3. SERTRALINE [Concomitant]
     Indication: DEPRESSION
     Dosage: 1 DF, DAILY
     Route: 048
  4. QUETIAPINE [Concomitant]
     Indication: AGITATION
     Dosage: 1 DF, DAILY
     Route: 048
  5. SOMALGIN [Concomitant]
     Dosage: UNK UKN, UNK

REACTIONS (4)
  - Haematuria [Recovered/Resolved]
  - Pruritus [Recovering/Resolving]
  - Erythema [Recovering/Resolving]
  - Wrong technique in drug usage process [Unknown]
